FAERS Safety Report 4494656-5 (Version None)
Quarter: 2004Q4

REPORT INFORMATION
  Report Type: 
  Country: None (occurrence: None)
  Receive Date: 20041103
  Receipt Date: 20041026
  Transmission Date: 20050328
  Serious: Yes (Life-Threatening)
  Sender: FDA-Public Use
  Company Number: 2004AP05472

PATIENT
  Age: 39 Year
  Sex: Female
  Weight: 60 kg

DRUGS (9)
  1. SEROQUEL [Suspect]
     Indication: SCHIZOPHRENIA
     Dates: start: 20000101
  2. LEVOMEPROMAZINE [Suspect]
     Indication: SCHIZOPHRENIA
     Dates: start: 20000101
  3. PROPOFOL [Concomitant]
  4. VECURONIUM [Concomitant]
  5. FENTANYL [Concomitant]
  6. NITROUS OXIDE W/ OXYGEN [Concomitant]
  7. OXYGEN [Concomitant]
  8. SEVOFLURANE [Concomitant]
  9. LIDOCAINE [Concomitant]

REACTIONS (3)
  - BLOOD PRESSURE DECREASED [None]
  - FLUSHING [None]
  - OXYGEN SATURATION DECREASED [None]
